FAERS Safety Report 8297337 (Version 3)
Quarter: 2012Q4

REPORT INFORMATION
  Report Type: 
  Country: US (occurrence: US)
  Receive Date: 20111216
  Receipt Date: 20121019
  Transmission Date: 20130627
  Serious: Yes (Other)
  Sender: FDA-Public Use
  Company Number: US-ROCHE-798827

PATIENT
  Age: 29 Year
  Sex: Male
  Weight: 95.34 kg

DRUGS (1)
  1. ACCUTANE [Suspect]
     Indication: ACNE CYSTIC
     Route: 048
     Dates: start: 199804, end: 199809

REACTIONS (10)
  - Crohn^s disease [Unknown]
  - Emotional distress [Unknown]
  - Anxiety [Unknown]
  - Inflammatory bowel disease [Unknown]
  - Anal fissure [Unknown]
  - Arthritis [Unknown]
  - Epistaxis [Unknown]
  - Blood cholesterol increased [Unknown]
  - Blood triglycerides increased [Unknown]
  - Lip dry [Unknown]
